FAERS Safety Report 4849064-1 (Version None)
Quarter: 2005Q4

REPORT INFORMATION
  Report Type: 
  Country: None (occurrence: None)
  Receive Date: 20051209
  Receipt Date: 20051129
  Transmission Date: 20060501
  Serious: Yes (Other)
  Sender: FDA-Public Use
  Company Number: US-AMGEN-US159435

PATIENT
  Sex: Male
  Weight: 90.3 kg

DRUGS (11)
  1. ARANESP [Suspect]
     Indication: ANAEMIA OF MALIGNANT DISEASE
     Route: 042
     Dates: start: 20050321, end: 20051031
  2. FLUDARABINE [Concomitant]
     Dates: start: 20050302, end: 20050520
  3. RITUXAN [Concomitant]
     Dates: start: 20050614, end: 20051004
  4. CYTOXAN [Concomitant]
     Dates: start: 20050621, end: 20051004
  5. DOXORUBICIN HCL [Concomitant]
     Dates: start: 20050621, end: 20051004
  6. VINCRISTINE [Concomitant]
     Dates: start: 20050621, end: 20051004
  7. PREDNISONE [Concomitant]
     Dates: start: 20050621, end: 20051004
  8. BACTRIM DS [Concomitant]
     Dates: start: 20050308, end: 20051031
  9. DIFLUCAN [Concomitant]
     Dates: start: 20050308, end: 20051031
  10. ACYCLOVIR [Concomitant]
     Dates: start: 20050308, end: 20051031
  11. NEUPOGEN [Concomitant]

REACTIONS (4)
  - APLASIA PURE RED CELL [None]
  - MYELODYSPLASTIC SYNDROME [None]
  - PANCYTOPENIA [None]
  - VIRAL INFECTION [None]
